FAERS Safety Report 24116265 (Version 1)
Quarter: 2024Q3

REPORT INFORMATION
  Report Type: Spontaneous
  Country: ES (occurrence: ES)
  Receive Date: 20240722
  Receipt Date: 20240722
  Transmission Date: 20241017
  Serious: Yes (Other)
  Sender: NOVO NORDISK
  Company Number: None

PATIENT
  Sex: Female
  Weight: 104 kg

DRUGS (4)
  1. TETRAXIM [Concomitant]
     Indication: Pertussis immunisation
     Dosage: UNK(SINGLE DOSE)
     Dates: start: 20240301, end: 20240301
  2. SAXENDA [Suspect]
     Active Substance: LIRAGLUTIDE
     Dosage: UNK(INCREASING WEEKLY)
     Route: 058
     Dates: end: 20240616
  3. SAXENDA [Suspect]
     Active Substance: LIRAGLUTIDE
     Dosage: 3 MG, QW
     Dates: end: 20240616
  4. SAXENDA [Suspect]
     Active Substance: LIRAGLUTIDE
     Indication: Obesity
     Dosage: 0.6 MG
     Route: 058
     Dates: start: 20240201

REACTIONS (4)
  - Rectal haemorrhage [Recovered/Resolved]
  - Abdominal pain [Recovered/Resolved]
  - Syncope [Recovered/Resolved]
  - Rectal haemorrhage [Unknown]

NARRATIVE: CASE EVENT DATE: 20240405
